FAERS Safety Report 17733810 (Version 1)
Quarter: 2020Q2

REPORT INFORMATION
  Report Type: Spontaneous
  Country: US (occurrence: US)
  Receive Date: 20200430
  Receipt Date: 20200430
  Transmission Date: 20200714
  Serious: No
  Sender: FDA-Public Use
  Company Number: None

PATIENT
  Age: 48 Year
  Sex: Male

DRUGS (1)
  1. DULAGLUTIDE (DULAGLUTIDE 0.75MG/0.5ML INJ,SOLN,PEN) [Suspect]
     Active Substance: DULAGLUTIDE
     Route: 058
     Dates: start: 20200401, end: 20200429

REACTIONS (3)
  - Blood creatinine increased [None]
  - Cholelithiasis [None]
  - Blood urea increased [None]

NARRATIVE: CASE EVENT DATE: 20200429
